FAERS Safety Report 4616092-0 (Version None)
Quarter: 2005Q1

REPORT INFORMATION
  Report Type: 
  Country: None (occurrence: None)
  Receive Date: 20050323
  Receipt Date: 20050315
  Transmission Date: 20050727
  Serious: Yes (Other)
  Sender: FDA-Public Use
  Company Number: 200510960FR

PATIENT
  Age: 61 Year
  Sex: Male
  Weight: 77 kg

DRUGS (6)
  1. DOCETAXEL [Suspect]
     Indication: PROSTATE CANCER
     Route: 042
     Dates: start: 20031112, end: 20031112
  2. ESTRAMUSTINE [Suspect]
     Indication: PROSTATE CANCER
     Route: 048
     Dates: start: 20031111, end: 20031115
  3. ZOLADEX [Suspect]
     Indication: PROSTATE CANCER
     Route: 058
     Dates: start: 20031021, end: 20031021
  4. CASODEX [Suspect]
     Indication: PROSTATE CANCER
     Route: 048
     Dates: start: 20031110, end: 20031110
  5. ASPIRIN [Suspect]
     Route: 048
     Dates: start: 20031013
  6. TAHOR [Concomitant]
     Indication: HYPERCHOLESTEROLAEMIA
     Route: 048
     Dates: start: 19990101

REACTIONS (2)
  - MACULAR OEDEMA [None]
  - VISUAL ACUITY REDUCED [None]
